FAERS Safety Report 5563143-5 (Version None)
Quarter: 2007Q4

REPORT INFORMATION
  Report Type: 
  Country: None (occurrence: None)
  Receive Date: 20071217
  Receipt Date: 20071211
  Transmission Date: 20080405
  Serious: Yes (Life-Threatening)
  Sender: FDA-Public Use
  Company Number: B0496630A

PATIENT
  Age: 90 Year
  Sex: Female
  Weight: 33 kg

DRUGS (7)
  1. VALTREX [Suspect]
     Indication: HERPES ZOSTER
     Dosage: 1000MG PER DAY
     Route: 048
     Dates: start: 20071109, end: 20071110
  2. NEUROTROPIN [Suspect]
     Indication: HERPES ZOSTER
     Route: 048
     Dates: start: 20071109, end: 20071110
  3. BUFFERIN [Concomitant]
     Dosage: 81MG PER DAY
     Route: 048
  4. ENALAPRIL MALEATE [Concomitant]
     Indication: HYPERTENSION
     Dosage: 2.5MG PER DAY
     Route: 048
  5. TAKEPRON [Concomitant]
     Dosage: 15MG PER DAY
     Route: 048
  6. MAGNESIUM OXIDE [Concomitant]
     Dosage: .5G PER DAY
     Route: 048
  7. TOFRANIL [Concomitant]
     Dosage: 10MG TWICE PER DAY
     Route: 048

REACTIONS (4)
  - ANAPHYLACTIC SHOCK [None]
  - BLOOD PRESSURE DECREASED [None]
  - LOSS OF CONSCIOUSNESS [None]
  - RESPIRATORY DEPRESSION [None]
